FAERS Safety Report 25756433 (Version 1)
Quarter: 2025Q3

REPORT INFORMATION
  Report Type: Spontaneous
  Country: US (occurrence: US)
  Receive Date: 20250903
  Receipt Date: 20250903
  Transmission Date: 20251021
  Serious: No
  Sender: BAYER HEALTHCARE PHARMACEUTICALS INC.
  Company Number: US-BAYER-2025A114580

PATIENT
  Sex: Female

DRUGS (3)
  1. MIRENA [Suspect]
     Active Substance: LEVONORGESTREL
     Indication: Contraception
     Dosage: 20?G/DAY
     Route: 015
     Dates: start: 201802
  2. DUPIXENT [Concomitant]
     Active Substance: DUPILUMAB
     Indication: Dermatitis atopic
  3. DUPIXENT [Concomitant]
     Active Substance: DUPILUMAB
     Indication: Urticaria

REACTIONS (1)
  - Pruritus [None]
